FAERS Safety Report 4277876-4 (Version None)
Quarter: 2004Q1

REPORT INFORMATION
  Report Type: 
  Country: None (occurrence: None)
  Receive Date: 20040121
  Receipt Date: 20030214
  Transmission Date: 20041129
  Serious: Yes (Other)
  Sender: FDA-Public Use
  Company Number: 2003-01-3600

PATIENT
  Sex: Female

DRUGS (3)
  1. SUBUTEX [Suspect]
     Indication: DRUG DEPENDENCE
     Dosage: 4 MG QD SUBLINGUAL
     Route: 060
     Dates: start: 20020701
  2. TOCO TABLETS [Concomitant]
  3. LEXOMIL (BROMAZEPAM) [Concomitant]

REACTIONS (3)
  - GALACTORRHOEA [None]
  - HYPERPROLACTINAEMIA [None]
  - PROLACTIN-PRODUCING PITUITARY TUMOUR [None]
